FAERS Safety Report 7760659-8 (Version None)
Quarter: 2011Q3

REPORT INFORMATION
  Report Type: 
  Country: None (occurrence: None)
  Receive Date: 20110919
  Receipt Date: 20110913
  Transmission Date: 20111222
  Serious: Yes (Death)
  Sender: FDA-Public Use
  Company Number: JP-PFIZER INC-2011202583

PATIENT
  Age: 83 Year
  Sex: Female

DRUGS (3)
  1. UNASYN [Concomitant]
     Dosage: 3 G, 2X/DAY
     Route: 041
  2. ZYVOX [Suspect]
     Indication: STAPHYLOCOCCAL INFECTION
     Dosage: 600 MG, 2X/DAY
     Route: 041
     Dates: start: 20110827, end: 20110830
  3. ZYVOX [Suspect]
     Dosage: 600 MG, 1X/DAY
     Route: 041
     Dates: start: 20110831, end: 20110831

REACTIONS (3)
  - CREATININE RENAL CLEARANCE INCREASED [None]
  - URINE OUTPUT DECREASED [None]
  - LIVER FUNCTION TEST ABNORMAL [None]
